FAERS Safety Report 5848613-4 (Version None)
Quarter: 2008Q3

REPORT INFORMATION
  Report Type: 
  Country: None (occurrence: None)
  Receive Date: 20080814
  Receipt Date: 20080729
  Transmission Date: 20090109
  Serious: Yes (Hospitalization)
  Sender: FDA-Public Use
  Company Number: 2008PV036188

PATIENT
  Age: 55 Year
  Sex: Female

DRUGS (10)
  1. SYMLIN [Suspect]
     Indication: TYPE 2 DIABETES MELLITUS
     Dosage: 60 MCG;TID;SC
     Route: 058
     Dates: start: 20080401
  2. SYMLIN [Suspect]
     Indication: TYPE 2 DIABETES MELLITUS
     Dosage: 45 MCG;TID;SC: 30 MCG;TID;SC: 15 MCG;TID;SC
     Route: 058
     Dates: start: 20080301, end: 20080301
  3. SYMLIN [Suspect]
     Indication: TYPE 2 DIABETES MELLITUS
     Dosage: 45 MCG;TID;SC: 30 MCG;TID;SC: 15 MCG;TID;SC
     Route: 058
     Dates: start: 20080301, end: 20080301
  4. SYMLIN [Suspect]
     Indication: TYPE 2 DIABETES MELLITUS
     Dosage: 45 MCG;TID;SC: 30 MCG;TID;SC: 15 MCG;TID;SC
     Route: 058
     Dates: start: 20080301, end: 20080401
  5. REGULAR INSULIN [Concomitant]
  6. LANTUS [Concomitant]
  7. PLAVIX [Concomitant]
  8. ALLOPURINOL [Concomitant]
  9. ZOCOR [Concomitant]
  10. LISINOPRIL [Concomitant]

REACTIONS (5)
  - ARRHYTHMIA [None]
  - BLOOD PRESSURE INCREASED [None]
  - CHEST DISCOMFORT [None]
  - HEART RATE INCREASED [None]
  - PHARMACEUTICAL PRODUCT COMPLAINT [None]
